FAERS Safety Report 9076732 (Version 1)
Quarter: 2013Q1

REPORT INFORMATION
  Report Type: Report from Study
  Country: US (occurrence: US)
  Receive Date: 20130129
  Receipt Date: 20130129
  Transmission Date: 20140127
  Serious: No
  Sender: FDA-Public Use
  Company Number: US-ABBOTT-12P-163-0915882-00

PATIENT
  Age: 53 Year
  Sex: Female

DRUGS (7)
  1. HUMIRA 40 MG/0.8 ML PEN [Suspect]
     Indication: CROHN^S DISEASE
     Dates: start: 20120217, end: 20120217
  2. HUMIRA 40 MG/0.8 ML PEN [Suspect]
     Dates: start: 20120217, end: 20120302
  3. AMLODIPINE BESYLATE [Concomitant]
     Indication: HYPERTENSION
     Dosage: 10 MG EVERY DAY
  4. BENAZEPRIL [Concomitant]
     Indication: HYPERTENSION
     Dosage: 20 MG EVERY DAY
  5. PENTASA [Concomitant]
     Indication: CROHN^S DISEASE
     Dosage: 500 MG X 3 TABS TWICE DAILY
  6. HYDROCODONE [Concomitant]
     Indication: PAIN
     Dosage: 1 TAB EVERY 6 HRS AS REQUIRED
  7. LOMOTIL [Concomitant]
     Indication: DIARRHOEA
     Dosage: 1 TAB EVERY 6 HOURS AS REQUIRED

REACTIONS (8)
  - Sinusitis [Recovering/Resolving]
  - Ear infection [Recovering/Resolving]
  - Nasopharyngitis [Not Recovered/Not Resolved]
  - Cough [Not Recovered/Not Resolved]
  - Rhinorrhoea [Not Recovered/Not Resolved]
  - Sneezing [Not Recovered/Not Resolved]
  - Oropharyngeal pain [Not Recovered/Not Resolved]
  - Chest pain [Not Recovered/Not Resolved]
